FAERS Safety Report 7250280-2 (Version None)
Quarter: 2011Q1

REPORT INFORMATION
  Report Type: 
  Country: None (occurrence: None)
  Receive Date: 20110128
  Receipt Date: 20110119
  Transmission Date: 20110831
  Serious: Yes (Disabling)
  Sender: FDA-Public Use
  Company Number: GB-ASTRAZENECA-2011SE01681

PATIENT
  Age: 49 Year
  Sex: Female

DRUGS (3)
  1. FASLODEX [Suspect]
     Indication: BREAST CANCER
     Dosage: 60 INJECTIONS, FREQUENCY: MONTHLY.
     Route: 030
     Dates: start: 20060101
  2. PROVERA [Concomitant]
     Route: 048
  3. CIPRALEX [Concomitant]

REACTIONS (1)
  - VULVOVAGINAL DRYNESS [None]
